FAERS Safety Report 6876038-1 (Version None)
Quarter: 2010Q3

REPORT INFORMATION
  Report Type: 
  Country: None (occurrence: None)
  Receive Date: 20100723
  Receipt Date: 20100709
  Transmission Date: 20110219
  Serious: Yes (Other)
  Sender: FDA-Public Use
  Company Number: TRP_07128_2010

PATIENT

DRUGS (1)
  1. AMPHOTEC [Suspect]
     Indication: PRODUCT USED FOR UNKNOWN INDICATION
     Dosage: ([3 BOTTLES VIALS TOTAL])

REACTIONS (1)
  - SKIN DISCOLOURATION [None]
